FAERS Safety Report 21242725 (Version 1)
Quarter: 2022Q3

REPORT INFORMATION
  Report Type: Spontaneous
  Country: US (occurrence: None)
  Receive Date: 20220822
  Receipt Date: 20220822
  Transmission Date: 20221026
  Serious: No
  Sender: FDA-Public Use
  Company Number: None

PATIENT
  Sex: Male

DRUGS (1)
  1. TALTZ [Suspect]
     Active Substance: IXEKIZUMAB
     Indication: Psoriasis
     Dosage: 160 MG EVERY 4 WEEKS SUBCUTANEOUS
     Route: 058
     Dates: start: 20220815

REACTIONS (3)
  - Device defective [None]
  - Incorrect dose administered [None]
  - Injection site extravasation [None]
